FAERS Safety Report 9945522 (Version 1)
Quarter: 2014Q1

REPORT INFORMATION
  Report Type: Report from Study
  Country: US (occurrence: US)
  Receive Date: 20140303
  Receipt Date: 20140303
  Transmission Date: 20141002
  Serious: No
  Sender: FDA-Public Use
  Company Number: US-ABBVIE-13P-163-1052284-00

PATIENT
  Age: 65 Year
  Sex: Female

DRUGS (7)
  1. HUMIRA [Suspect]
     Indication: RHEUMATOID ARTHRITIS
     Dates: end: 201205
  2. HUMIRA [Suspect]
     Dates: start: 201211
  3. LOSARTAN [Concomitant]
     Indication: HYPERTENSION
     Dosage: 50 MG DAILY
  4. SINGULAIR [Concomitant]
     Indication: SEASONAL ALLERGY
     Dosage: 10 MG DAILY
  5. CITALOPRAM [Concomitant]
     Indication: DEPRESSION
     Dosage: 20 MG DAILY
  6. LORAZEPAM [Concomitant]
     Indication: ANXIETY
  7. NEURONTIN [Concomitant]
     Indication: NEURALGIA

REACTIONS (5)
  - Device malfunction [Unknown]
  - Incorrect dose administered [Unknown]
  - Drug ineffective [Not Recovered/Not Resolved]
  - Mobility decreased [Unknown]
  - Pain [Unknown]
